FAERS Safety Report 6175843-7 (Version None)
Quarter: 2009Q2

REPORT INFORMATION
  Report Type: 
  Country: None (occurrence: None)
  Receive Date: 20090501
  Receipt Date: 20090421
  Transmission Date: 20091009
  Serious: No
  Sender: FDA-Public Use
  Company Number: US-B.I. PHARMACEUTICALS,INC./RIDGEFIELD-2009-BP-04974BP

PATIENT
  Age: 50 Year
  Sex: Female

DRUGS (1)
  1. FLOMAX [Suspect]
     Indication: NEPHROLITHIASIS
     Dosage: .4MG
     Route: 048
     Dates: start: 20090301, end: 20090419

REACTIONS (2)
  - BACK PAIN [None]
  - URETHRAL PAIN [None]
